FAERS Safety Report 21907559 (Version 3)
Quarter: 2023Q2

REPORT INFORMATION
  Report Type: Spontaneous
  Country: DE (occurrence: DE)
  Receive Date: 20230125
  Receipt Date: 20230421
  Transmission Date: 20230722
  Serious: Yes (Hospitalization)
  Sender: FDA-Public Use
  Company Number: DE-002147023-NVSC2023DE015110

PATIENT
  Age: 3 Month
  Sex: Female

DRUGS (4)
  1. TRAMETINIB [Suspect]
     Active Substance: TRAMETINIB
     Indication: Noonan syndrome
     Dosage: 0.023 MG/KG, QD
     Route: 065
  2. TRAMETINIB [Suspect]
     Active Substance: TRAMETINIB
     Indication: Left ventricular dysfunction
  3. TRAMETINIB [Suspect]
     Active Substance: TRAMETINIB
     Indication: Hypertrophy
  4. TRAMETINIB [Suspect]
     Active Substance: TRAMETINIB
     Indication: N-terminal prohormone brain natriuretic peptide increased

REACTIONS (4)
  - Bradycardia [Recovered/Resolved]
  - Rash [Recovered/Resolved]
  - Product use issue [Unknown]
  - Product use in unapproved indication [Unknown]
